FAERS Safety Report 20829389 (Version 2)
Quarter: 2022Q3

REPORT INFORMATION
  Report Type: Spontaneous
  Country: US (occurrence: US)
  Receive Date: 20220513
  Receipt Date: 20220713
  Transmission Date: 20221026
  Serious: No
  Sender: FDA-Public Use
  Company Number: US-SANOFI-01097033

PATIENT
  Age: 18 Year
  Sex: Male
  Weight: 80 kg

DRUGS (1)
  1. TUBERSOL [Suspect]
     Active Substance: TUBERCULIN PURIFIED PROTEIN DERIVATIVE
     Indication: Mycobacterium tuberculosis complex test
     Dosage: 0.1 ML, 1X
     Route: 023
     Dates: start: 20220507, end: 20220507

REACTIONS (6)
  - Fatigue [Unknown]
  - Oropharyngeal pain [Unknown]
  - Pain [Unknown]
  - Nausea [Unknown]
  - Appetite disorder [Unknown]
  - Pyrexia [Unknown]

NARRATIVE: CASE EVENT DATE: 20220509
